FAERS Safety Report 23609848 (Version 1)
Quarter: 2024Q1

REPORT INFORMATION
  Report Type: Report from Study
  Country: US (occurrence: US)
  Receive Date: 20240308
  Receipt Date: 20240308
  Transmission Date: 20240410
  Serious: Yes (Death, Hospitalization, Other)
  Sender: FDA-Public Use
  Company Number: US-ABBVIE-5669735

PATIENT
  Age: 70 Year
  Sex: Male
  Weight: 102 kg

DRUGS (2)
  1. LINZESS [Suspect]
     Active Substance: LINACLOTIDE
     Indication: Constipation
     Dosage: FORM STRENGTH: 145 MICROGRAM
     Route: 048
     Dates: start: 202309, end: 202311
  2. LINZESS [Suspect]
     Active Substance: LINACLOTIDE
     Indication: Constipation
     Dosage: FORM STRENGTH: 145 MICROGRAM
     Route: 048
     Dates: start: 202311

REACTIONS (3)
  - Acute myeloid leukaemia [Fatal]
  - Haemoglobin decreased [Not Recovered/Not Resolved]
  - Parkinson^s disease [Fatal]

NARRATIVE: CASE EVENT DATE: 20240209
